FAERS Safety Report 19943540 (Version 1)
Quarter: 2021Q4

REPORT INFORMATION
  Report Type: Spontaneous
  Country: US (occurrence: US)
  Receive Date: 20211009
  Receipt Date: 20211009
  Transmission Date: 20220303
  Serious: Yes (Life-Threatening)
  Sender: FDA-Public Use
  Company Number: None

PATIENT
  Age: 68 Year
  Sex: Female
  Weight: 72 kg

DRUGS (1)
  1. DULOXETINE [Suspect]
     Active Substance: DULOXETINE
     Indication: Depression
     Dosage: ?          QUANTITY:1 CAPSULE(S);
     Route: 048

REACTIONS (2)
  - Withdrawal syndrome [None]
  - Macular hole [None]

NARRATIVE: CASE EVENT DATE: 20200120
